FAERS Safety Report 9843557 (Version 1)
Quarter: 2013Q4

REPORT INFORMATION
  Report Type: Spontaneous
  Country: US (occurrence: None)
  Receive Date: 20131223
  Receipt Date: 20131223
  Transmission Date: 20140711
  Serious: Yes (Other)
  Sender: FDA-Public Use
  Company Number: 219286LEO

PATIENT
  Sex: Female

DRUGS (5)
  1. PICATO [Suspect]
     Indication: PRECANCEROUS CELLS PRESENT
     Dosage: (1 IN 1 D), DERMAL
     Dates: start: 20120929
  2. SYMBICORT [Concomitant]
  3. FLEXERIL (CYCLOBENZAORINE HYDROCHLORIDE) [Concomitant]
  4. IBUPROFEN (IBUPROFEN) [Concomitant]
  5. FOSMAX (ALENDRONATE SODIUM) [Concomitant]

REACTIONS (3)
  - Application site pain [None]
  - Application site discomfort [None]
  - Application site vesicles [None]
